FAERS Safety Report 25189711 (Version 5)
Quarter: 2025Q3

REPORT INFORMATION
  Report Type: Spontaneous
  Country: TW (occurrence: TW)
  Receive Date: 20250411
  Receipt Date: 20250915
  Transmission Date: 20251021
  Serious: Yes (Death)
  Sender: BOEHRINGER INGELHEIM
  Company Number: TW-BoehringerIngelheim-2025-BI-020843

PATIENT
  Age: 80 Year
  Sex: Male
  Weight: 62.7 kg

DRUGS (7)
  1. LINAGLIPTIN\METFORMIN HYDROCHLORIDE [Suspect]
     Active Substance: LINAGLIPTIN\METFORMIN HYDROCHLORIDE
     Indication: Diabetes mellitus
     Dosage: 2.5/850MG
     Dates: start: 20231207, end: 20250330
  2. Bowklean [Concomitant]
     Indication: Colonoscopy
     Dates: start: 20250324, end: 20250325
  3. HYDROCHLOROTHIAZIDE\TELMISARTAN [Concomitant]
     Active Substance: HYDROCHLOROTHIAZIDE\TELMISARTAN
     Indication: Hypertension
     Dosage: 40/12.5MG
     Dates: start: 20240513, end: 20250330
  4. NORVASC [Concomitant]
     Active Substance: AMLODIPINE BESYLATE
     Indication: Product used for unknown indication
     Dates: start: 20240513, end: 20250330
  5. Glitos [Concomitant]
     Indication: Product used for unknown indication
     Dosage: 33.06 MG
     Dates: start: 20231207, end: 20250330
  6. ARICEPT [Concomitant]
     Active Substance: DONEPEZIL HYDROCHLORIDE
     Indication: Product used for unknown indication
     Dates: start: 20240418, end: 20250330
  7. ASPIRIN [Concomitant]
     Active Substance: ASPIRIN
     Dates: start: 20231207, end: 20250330

REACTIONS (6)
  - Acute kidney injury [Fatal]
  - Dyspnoea [Fatal]
  - Urine output decreased [Fatal]
  - Lactic acidosis [Fatal]
  - Colitis ischaemic [Fatal]
  - Multiple organ dysfunction syndrome [Fatal]

NARRATIVE: CASE EVENT DATE: 20250330
